FAERS Safety Report 8579151 (Version 5)
Quarter: 2013Q2

REPORT INFORMATION
  Report Type: Spontaneous
  Country: US (occurrence: US)
  Receive Date: 20120524
  Receipt Date: 20130401
  Transmission Date: 20140414
  Serious: Yes (Hospitalization, Disabling, Other)
  Sender: FDA-Public Use
  Company Number: US-009507513-1205USA02857

PATIENT
  Sex: Female
  Weight: 81.63 kg

DRUGS (4)
  1. FOSAMAX [Suspect]
     Indication: BONE DISORDER
     Dosage: 70 MG QW
     Route: 048
     Dates: start: 199609
  2. FOSAMAX [Suspect]
     Indication: OSTEOPOROSIS PROPHYLAXIS
  3. COVERA [Concomitant]
     Indication: HYPERTENSION
     Dosage: UNK
     Dates: start: 19960619
  4. MECLIZINE [Concomitant]
     Indication: MOTION SICKNESS
     Dosage: UNK
     Dates: start: 19930217

REACTIONS (29)
  - Femur fracture [Unknown]
  - Open reduction of fracture [Unknown]
  - Knee arthroplasty [Unknown]
  - Femur fracture [Unknown]
  - Fracture nonunion [Recovered/Resolved]
  - Oxygen saturation decreased [Unknown]
  - Open reduction of fracture [Unknown]
  - Stress fracture [Unknown]
  - Device failure [Unknown]
  - Osteoporosis [Unknown]
  - Knee arthroplasty [Unknown]
  - Bone density decreased [Unknown]
  - Impaired healing [Unknown]
  - Fall [Unknown]
  - Osteoarthritis [Unknown]
  - Osteoarthritis [Unknown]
  - Tonsillectomy [Unknown]
  - Uterine dilation and curettage [Unknown]
  - Anaemia postoperative [Unknown]
  - Polyarthritis [Unknown]
  - Exercise tolerance decreased [Unknown]
  - Urinary tract infection enterococcal [Unknown]
  - Osteoarthritis [Unknown]
  - Tendon injury [Unknown]
  - Bone marrow oedema [Unknown]
  - Osteoarthritis [Unknown]
  - Blood cholesterol increased [Unknown]
  - Dizziness [Not Recovered/Not Resolved]
  - Constipation [Recovered/Resolved]
